FAERS Safety Report 20511664 (Version 2)
Quarter: 2022Q1

REPORT INFORMATION
  Report Type: Spontaneous
  Country: BR (occurrence: BR)
  Receive Date: 20220224
  Receipt Date: 20220303
  Transmission Date: 20220423
  Serious: Yes (Other)
  Sender: FDA-Public Use
  Company Number: BR-AMERICAN REGENT INC-2022000383

PATIENT
  Age: 45 Year
  Sex: Female
  Weight: 80 kg

DRUGS (10)
  1. FERINJECT [Suspect]
     Active Substance: FERRIC CARBOXYMALTOSE
     Indication: Anaemia of chronic disease
     Dosage: 1 IN 1M
     Route: 042
     Dates: start: 201908
  2. FERINJECT [Suspect]
     Active Substance: FERRIC CARBOXYMALTOSE
     Indication: Inflammation
  3. FERINJECT [Suspect]
     Active Substance: FERRIC CARBOXYMALTOSE
     Indication: Hidradenitis
  4. VENOFER [Suspect]
     Active Substance: IRON SUCROSE
     Indication: Anaemia of chronic disease
     Dosage: UNK
     Route: 042
  5. VENOFER [Suspect]
     Active Substance: IRON SUCROSE
     Dosage: UNK
     Route: 048
  6. VENOFER [Suspect]
     Active Substance: IRON SUCROSE
     Dosage: 2 AMPOULES PER WEEK
     Route: 042
     Dates: start: 202111
  7. VENOFER [Suspect]
     Active Substance: IRON SUCROSE
     Dosage: 04FEB (UNSPECIFIED YEAR), 1 APPLICATION (2 AMPOULES) ONCE PER WEEK
     Route: 042
  8. XARELTO [Suspect]
     Active Substance: RIVAROXABAN
     Indication: Thrombosis
     Dosage: UNK
     Route: 065
  9. CLOZAPINE [Concomitant]
     Active Substance: CLOZAPINE
     Indication: Schizophrenia
     Dosage: UNK AT NIGHT
     Route: 065
     Dates: start: 2010
  10. GLIFAGE [Concomitant]
     Active Substance: METFORMIN HYDROCHLORIDE
     Indication: Product used for unknown indication
     Dosage: UNK, 3 IN 1D
     Route: 065

REACTIONS (31)
  - Deep vein thrombosis [Unknown]
  - Blood glucose increased [Not Recovered/Not Resolved]
  - Red blood cell count decreased [Not Recovered/Not Resolved]
  - Haemoglobin decreased [Not Recovered/Not Resolved]
  - Haematocrit decreased [Not Recovered/Not Resolved]
  - Mean cell haemoglobin concentration decreased [Not Recovered/Not Resolved]
  - White blood cell count increased [Not Recovered/Not Resolved]
  - Neutrophil count increased [Not Recovered/Not Resolved]
  - White blood cell morphology abnormal [Recovered/Resolved]
  - Lymphocyte count increased [Recovered/Resolved]
  - Monocyte count increased [Recovered/Resolved]
  - Platelet count increased [Not Recovered/Not Resolved]
  - Mean platelet volume decreased [Recovered/Resolved]
  - Red blood cell sedimentation rate increased [Not Recovered/Not Resolved]
  - Blood iron decreased [Not Recovered/Not Resolved]
  - Iron binding capacity total decreased [Not Recovered/Not Resolved]
  - Blood bilirubin unconjugated increased [Not Recovered/Not Resolved]
  - Blood bilirubin decreased [Not Recovered/Not Resolved]
  - Blood creatinine decreased [Not Recovered/Not Resolved]
  - Low density lipoprotein increased [Not Recovered/Not Resolved]
  - High density lipoprotein decreased [Not Recovered/Not Resolved]
  - Non-high-density lipoprotein cholesterol increased [Not Recovered/Not Resolved]
  - Inflammation [Unknown]
  - Condition aggravated [Unknown]
  - Infection [Unknown]
  - Thyroid hormones increased [Not Recovered/Not Resolved]
  - Blood albumin decreased [Not Recovered/Not Resolved]
  - Blood lactate dehydrogenase decreased [Recovered/Resolved]
  - Serum ferritin increased [Not Recovered/Not Resolved]
  - Product use complaint [Unknown]
  - Incorrect route of product administration [Unknown]

NARRATIVE: CASE EVENT DATE: 20200506
